FAERS Safety Report 5794814-3 (Version None)
Quarter: 2008Q2

REPORT INFORMATION
  Report Type: 
  Country: None (occurrence: None)
  Receive Date: 20080630
  Receipt Date: 20080620
  Transmission Date: 20081010
  Serious: Yes (Other)
  Sender: FDA-Public Use
  Company Number: B0360786A

PATIENT
  Age: 34 Year
  Sex: Female

DRUGS (9)
  1. PAROXETINE HCL [Suspect]
     Indication: DEPRESSION
     Route: 065
     Dates: start: 19971028
  2. PROPRANOLOL [Concomitant]
     Indication: HYPERVENTILATION
     Dates: start: 19970901
  3. ALCOHOL [Concomitant]
     Dates: start: 19980401
  4. ZOLPIDEM [Concomitant]
     Dates: start: 20000201
  5. ZALEPLON [Concomitant]
     Dates: start: 20021001, end: 20021001
  6. MIRTAZAPINE [Concomitant]
     Dates: start: 20050201, end: 20050201
  7. AMITRIPTYLINE HCL [Concomitant]
     Dates: start: 20050101
  8. DIAZEPAM [Concomitant]
     Dates: start: 20050801
  9. ZISPIN [Concomitant]
     Dates: start: 20051001

REACTIONS (18)
  - ABDOMINAL PAIN [None]
  - AGITATION [None]
  - ANXIETY [None]
  - CONFUSIONAL STATE [None]
  - DISTURBANCE IN ATTENTION [None]
  - DIZZINESS [None]
  - DRUG WITHDRAWAL SYNDROME [None]
  - FATIGUE [None]
  - INSOMNIA [None]
  - JAUNDICE [None]
  - NAUSEA [None]
  - OVERDOSE [None]
  - PARAESTHESIA [None]
  - SENSORY DISTURBANCE [None]
  - SUICIDAL IDEATION [None]
  - TEARFULNESS [None]
  - TREMOR [None]
  - VOMITING [None]
